FAERS Safety Report 8216416-1 (Version None)
Quarter: 2012Q1

REPORT INFORMATION
  Report Type: 
  Country: None (occurrence: None)
  Receive Date: 20120316
  Receipt Date: 20120312
  Transmission Date: 20120608
  Serious: Yes (Other)
  Sender: FDA-Public Use
  Company Number: PHEH2010US003902

PATIENT
  Sex: Male
  Weight: 96.145 kg

DRUGS (11)
  1. PANCRELIPASE [Concomitant]
  2. TEKTURNA [Concomitant]
  3. ATIVAN [Concomitant]
  4. CLONIDINE [Concomitant]
  5. SEROQUEL [Concomitant]
  6. NORCO [Concomitant]
  7. TOBI [Suspect]
     Dosage: 300 MG, BID, 14 DAYS ON AND 14 DAYS OFF
     Dates: start: 20101117
  8. CARDIZEM [Concomitant]
  9. COREG [Concomitant]
  10. LASIX [Concomitant]
  11. LIPOFENE [Concomitant]

REACTIONS (1)
  - CARCINOID TUMOUR [None]
